FAERS Safety Report 19205002 (Version 1)
Quarter: 2021Q2

REPORT INFORMATION
  Report Type: Spontaneous
  Country: GB (occurrence: GB)
  Receive Date: 20210503
  Receipt Date: 20210503
  Transmission Date: 20210717
  Serious: Yes (Other)
  Sender: FDA-Public Use
  Company Number: GB-MYLANLABS-2021M1012275

PATIENT
  Age: 24 Year
  Sex: Female

DRUGS (1)
  1. CLOZARIL [Suspect]
     Active Substance: CLOZAPINE
     Indication: SCHIZOPHRENIA
     Dosage: UNK
     Route: 048
     Dates: start: 20201207

REACTIONS (6)
  - Neutropenia [Recovered/Resolved]
  - Acute psychosis [Unknown]
  - White blood cell count decreased [Recovered/Resolved]
  - Urinary incontinence [Unknown]
  - Communication disorder [Unknown]
  - Hallucination [Unknown]

NARRATIVE: CASE EVENT DATE: 2021
